FAERS Safety Report 4928884-9 (Version None)
Quarter: 2006Q1

REPORT INFORMATION
  Report Type: 
  Country: None (occurrence: None)
  Receive Date: 20060223
  Receipt Date: 20060202
  Transmission Date: 20060701
  Serious: Yes (Hospitalization)
  Sender: FDA-Public Use
  Company Number: US200602000962

PATIENT
  Age: 69 Year
  Sex: Female

DRUGS (4)
  1. HUMATROPE [Suspect]
     Indication: BONE DENSITY DECREASED
     Dosage: 0.5 MG
     Dates: start: 20040101
  2. ZOCOR [Concomitant]
  3. PROTONIX [Concomitant]
  4. PLAVIX [Concomitant]

REACTIONS (2)
  - CEREBROVASCULAR ACCIDENT [None]
  - PHARMACEUTICAL PRODUCT COMPLAINT [None]
